FAERS Safety Report 6180320-3 (Version None)
Quarter: 2009Q2

REPORT INFORMATION
  Report Type: 
  Country: None (occurrence: None)
  Receive Date: 20090504
  Receipt Date: 20090504
  Transmission Date: 20091009
  Serious: No
  Sender: FDA-Public Use
  Company Number: None

PATIENT
  Age: 47 Year
  Sex: Male
  Weight: 122.4712 kg

DRUGS (1)
  1. FENTORA [Suspect]
     Indication: PAIN
     Dosage: 400 MCG. EVERY 6 HRS.
     Dates: start: 20090430

REACTIONS (2)
  - TABLET ISSUE [None]
  - THERAPEUTIC RESPONSE UNEXPECTED [None]
